FAERS Safety Report 7297368-8 (Version None)
Quarter: 2011Q1

REPORT INFORMATION
  Report Type: 
  Country: None (occurrence: None)
  Receive Date: 20110216
  Receipt Date: 20110215
  Transmission Date: 20110831
  Serious: Yes (Other)
  Sender: FDA-Public Use
  Company Number: US-JNJCH-2011004052

PATIENT
  Age: 59 Year
  Sex: Female
  Weight: 59.9 kg

DRUGS (2)
  1. PRECISE EXTRA STRENGTH PAIN RELIEVING CREAM [Suspect]
     Indication: BACK PAIN
     Dosage: TEXT:UNSPECIFIED ONCE
     Route: 061
     Dates: start: 20110213, end: 20110214
  2. LEXAPRO [Concomitant]
     Indication: ANXIETY
     Route: 048

REACTIONS (3)
  - APPLICATION SITE VESICLES [None]
  - APPLICATION SITE RASH [None]
  - APPLICATION SITE BURN [None]
